FAERS Safety Report 25562292 (Version 2)
Quarter: 2025Q3

REPORT INFORMATION
  Report Type: Spontaneous
  Country: US (occurrence: US)
  Receive Date: 20250716
  Receipt Date: 20250716
  Transmission Date: 20251021
  Serious: Yes (Other)
  Sender: NOVO NORDISK
  Company Number: US-NOVOPROD-1290602

PATIENT
  Age: 45 Year
  Sex: Female
  Weight: 102.95 kg

DRUGS (27)
  1. OZEMPIC [Suspect]
     Active Substance: SEMAGLUTIDE
     Dosage: 0.25 MG, QW
     Dates: start: 20230120, end: 20230303
  2. OZEMPIC [Suspect]
     Active Substance: SEMAGLUTIDE
     Dosage: 0.5 MG, QW
     Dates: start: 20200313, end: 20200501
  3. OZEMPIC [Suspect]
     Active Substance: SEMAGLUTIDE
     Indication: Type 2 diabetes mellitus
     Dosage: 0.25 MG, QW
     Dates: start: 20200214, end: 20200313
  4. OZEMPIC [Suspect]
     Active Substance: SEMAGLUTIDE
     Dosage: 0.5 MG, QW
     Dates: start: 20230303, end: 20230324
  5. OZEMPIC [Suspect]
     Active Substance: SEMAGLUTIDE
     Dosage: 0.25 MG, QW
     Dates: start: 20200508, end: 20210416
  6. OZEMPIC [Suspect]
     Active Substance: SEMAGLUTIDE
     Dosage: 0.5 MG, QW
     Dates: start: 20210416, end: 20211201
  7. OZEMPIC [Suspect]
     Active Substance: SEMAGLUTIDE
     Indication: Type 2 diabetes mellitus
     Dosage: 1 MG, QW
     Dates: start: 20230324, end: 20231020
  8. METFORMIN [Concomitant]
     Active Substance: METFORMIN HYDROCHLORIDE
     Indication: Type 2 diabetes mellitus
     Dates: start: 20050201
  9. JANUVIA [Concomitant]
     Active Substance: SITAGLIPTIN PHOSPHATE
     Indication: Type 2 diabetes mellitus
     Dates: start: 20220104, end: 20230911
  10. LANTUS [Concomitant]
     Active Substance: INSULIN GLARGINE
     Indication: Type 2 diabetes mellitus
     Dates: start: 20230331
  11. GLIMEPIRIDE [Concomitant]
     Active Substance: GLIMEPIRIDE
     Indication: Type 2 diabetes mellitus
     Dates: start: 20220104
  12. JARDIANCE [Concomitant]
     Active Substance: EMPAGLIFLOZIN
     Indication: Type 2 diabetes mellitus
     Dates: start: 20220323, end: 20230120
  13. BACLOFEN [Concomitant]
     Active Substance: BACLOFEN
     Indication: Back pain
     Dates: start: 20180508, end: 20220616
  14. OMEPRAZOLE [Concomitant]
     Active Substance: OMEPRAZOLE
     Indication: Abdominal pain lower
     Dates: start: 20181101, end: 20230901
  15. OMEPRAZOLE [Concomitant]
     Active Substance: OMEPRAZOLE
     Indication: Gastrooesophageal reflux disease
  16. PRAVASTATIN SODIUM [Concomitant]
     Active Substance: PRAVASTATIN SODIUM
     Indication: Cardiac disorder
     Dates: start: 20181128, end: 20220616
  17. LISINOPRIL [Concomitant]
     Active Substance: LISINOPRIL
     Indication: Drug therapy
     Dates: start: 20181128, end: 20200618
  18. SUCRALFATE [Concomitant]
     Active Substance: SUCRALFATE
     Indication: Gastrooesophageal reflux disease
     Dates: start: 20200528, end: 20231110
  19. WELLBUTRIN SR [Concomitant]
     Active Substance: BUPROPION HYDROCHLORIDE
     Indication: Nicotine dependence
     Dates: start: 20230303, end: 20231120
  20. PEPCID [Concomitant]
     Active Substance: FAMOTIDINE
     Indication: Gastrooesophageal reflux disease
     Dates: start: 20230331, end: 20230430
  21. NICODERM CQ [Concomitant]
     Active Substance: NICOTINE
     Indication: Nicotine dependence
     Dates: start: 20230707, end: 20231110
  22. FAMOTIDINE [Concomitant]
     Active Substance: FAMOTIDINE
     Indication: Gastrooesophageal reflux disease
     Dates: start: 20230519, end: 20231110
  23. PEPTO-BISMOL [Concomitant]
     Active Substance: BISMUTH SUBSALICYLATE
     Indication: Abdominal discomfort
     Dates: start: 20210826
  24. GAS-X [Concomitant]
     Active Substance: DIMETHICONE
     Indication: Abdominal discomfort
     Dates: start: 20210826
  25. PREDNISONE [Concomitant]
     Active Substance: PREDNISONE
     Indication: Sciatica
     Dates: start: 20220401, end: 20220901
  26. PREDNISONE [Concomitant]
     Active Substance: PREDNISONE
     Indication: Back pain
     Dates: start: 20200916, end: 20200925
  27. PREDNISONE [Concomitant]
     Active Substance: PREDNISONE
     Indication: Bronchitis

REACTIONS (3)
  - Impaired gastric emptying [Not Recovered/Not Resolved]
  - Anxiety [Unknown]
  - Eructation [Unknown]

NARRATIVE: CASE EVENT DATE: 20200217
